FAERS Safety Report 5320002-0 (Version None)
Quarter: 2007Q2

REPORT INFORMATION
  Report Type: 
  Country: None (occurrence: None)
  Receive Date: 20070503
  Receipt Date: 20070419
  Transmission Date: 20071010
  Serious: Yes (Hospitalization)
  Sender: FDA-Public Use
  Company Number: CERZ-11625

PATIENT
  Age: 63 Year
  Sex: Female
  Weight: 81.36 kg

DRUGS (1)
  1. CEREZYME [Suspect]
     Indication: GAUCHER'S DISEASE
     Dosage: 4800 UNITS Q2WKS IV
     Route: 042
     Dates: start: 19980205

REACTIONS (2)
  - CARDIAC DISORDER [None]
  - PULMONARY HYPERTENSION [None]
